FAERS Safety Report 15845313 (Version 2)
Quarter: 2019Q1

REPORT INFORMATION
  Report Type: Report from Study
  Country: US (occurrence: US)
  Receive Date: 20190119
  Receipt Date: 20190329
  Transmission Date: 20190417
  Serious: No
  Sender: FDA-Public Use
  Company Number: PHEH2019US002238

PATIENT
  Sex: Female

DRUGS (1)
  1. COSENTYX [Suspect]
     Active Substance: SECUKINUMAB
     Indication: PSORIASIS
     Dosage: 150 MG, QMO
     Route: 058

REACTIONS (5)
  - Upper respiratory tract infection [Unknown]
  - Psoriasis [Unknown]
  - Asthenia [Unknown]
  - Decreased immune responsiveness [Unknown]
  - Sluggishness [Unknown]
